FAERS Safety Report 6885676-1 (Version None)
Quarter: 2010Q3

REPORT INFORMATION
  Report Type: 
  Country: None (occurrence: None)
  Receive Date: 20100729
  Receipt Date: 20080930
  Transmission Date: 20110219
  Serious: Yes (Other)
  Sender: FDA-Public Use
  Company Number: US-PFIZER INC-2008070592

PATIENT
  Age: 60 Year
  Sex: Male
  Weight: 134.7 kg

DRUGS (8)
  1. CELEBREX [Suspect]
     Indication: PAIN
  2. CELEBREX [Suspect]
     Indication: BACK PAIN
  3. PRAVACHOL [Concomitant]
  4. TRIAMTERENE AND HYDROCHLOROTHIAZIDE [Concomitant]
  5. VIAGRA [Concomitant]
  6. DIAZEPAM [Concomitant]
  7. CYMBALTA [Concomitant]
  8. VICODIN [Concomitant]

REACTIONS (2)
  - DRUG HYPERSENSITIVITY [None]
  - RASH GENERALISED [None]
